FAERS Safety Report 11785002 (Version 46)
Quarter: 2024Q4

REPORT INFORMATION
  Report Type: Report from Study
  Country: CA (occurrence: CA)
  Receive Date: 20151130
  Receipt Date: 20241105
  Transmission Date: 20250115
  Serious: Yes (Other)
  Sender: ROCHE
  Company Number: CA-ROCHE-1141931

PATIENT
  Age: 50 Year
  Sex: Female
  Weight: 111 kg

DRUGS (35)
  1. ACTEMRA [Suspect]
     Active Substance: TOCILIZUMAB
     Indication: Rheumatoid arthritis
     Dosage: DRUG DOSE FIRST ADMINISTERED IS 800 MG MILLIGRAM(S)
     Route: 042
     Dates: start: 20120905, end: 20170724
  2. ACTEMRA [Suspect]
     Active Substance: TOCILIZUMAB
     Dosage: DRUG DOSE FIRST ADMINISTERED IS 800 MG MILLIGRAM(S)
     Route: 042
     Dates: start: 20220303
  3. ACTEMRA [Suspect]
     Active Substance: TOCILIZUMAB
     Route: 042
     Dates: start: 20120905, end: 20170724
  4. ACTEMRA [Suspect]
     Active Substance: TOCILIZUMAB
     Route: 042
  5. ACTEMRA [Suspect]
     Active Substance: TOCILIZUMAB
     Route: 042
  6. ACTEMRA [Suspect]
     Active Substance: TOCILIZUMAB
     Route: 042
  7. ACTEMRA [Suspect]
     Active Substance: TOCILIZUMAB
     Route: 042
  8. ACTEMRA [Suspect]
     Active Substance: TOCILIZUMAB
     Route: 042
  9. ACTEMRA [Suspect]
     Active Substance: TOCILIZUMAB
     Route: 042
  10. ACTEMRA [Suspect]
     Active Substance: TOCILIZUMAB
     Route: 042
  11. ACTEMRA [Suspect]
     Active Substance: TOCILIZUMAB
     Route: 042
  12. ACTEMRA [Suspect]
     Active Substance: TOCILIZUMAB
     Route: 042
  13. ACTEMRA [Suspect]
     Active Substance: TOCILIZUMAB
     Route: 042
  14. ACTEMRA [Suspect]
     Active Substance: TOCILIZUMAB
     Route: 042
  15. ACTEMRA [Suspect]
     Active Substance: TOCILIZUMAB
     Route: 042
  16. ACTEMRA [Suspect]
     Active Substance: TOCILIZUMAB
     Route: 042
  17. METHOTREXATE [Suspect]
     Active Substance: METHOTREXATE
     Indication: Rheumatoid arthritis
     Route: 058
     Dates: start: 20090709, end: 20140226
  18. CALCIUM [Concomitant]
     Active Substance: CALCIUM
  19. CRESTOR [Concomitant]
     Active Substance: ROSUVASTATIN CALCIUM
  20. ENDOCET [Concomitant]
     Active Substance: ACETAMINOPHEN\OXYCODONE HYDROCHLORIDE
  21. FOLIC ACID [Concomitant]
     Active Substance: FOLIC ACID
  22. HYDROCHLOROTHIAZIDE [Concomitant]
     Active Substance: HYDROCHLOROTHIAZIDE
  23. IRBESARTAN [Concomitant]
     Active Substance: IRBESARTAN
  24. IRON [Concomitant]
     Active Substance: IRON
  25. OLMESARTAN MEDOXOMIL [Concomitant]
     Active Substance: OLMESARTAN MEDOXOMIL
     Indication: Blood pressure measurement
  26. OXYCODONE [Concomitant]
     Active Substance: OXYCODONE
  27. CLINDAMYCIN [Concomitant]
     Active Substance: CLINDAMYCIN
     Dosage: ALLERGY
  28. PANTOPRAZOLE [Concomitant]
     Active Substance: PANTOPRAZOLE
  29. PANTOPRAZOLE MAGNESIUM [Concomitant]
     Active Substance: PANTOPRAZOLE MAGNESIUM
  30. COENZYM Q10 [Concomitant]
  31. CURCUMIN [Concomitant]
     Active Substance: CURCUMIN
  32. ZENHALE [Concomitant]
     Active Substance: FORMOTEROL FUMARATE\MOMETASONE FUROATE
     Dates: start: 2022
  33. HERBALS\TURMERIC [Concomitant]
     Active Substance: HERBALS\TURMERIC
  34. COENZYME Q10 [Concomitant]
     Active Substance: DIETARY SUPPLEMENT\UBIDECARENONE
  35. AZITHROMYCIN [Concomitant]
     Active Substance: AZITHROMYCIN
     Dates: start: 20240304

REACTIONS (52)
  - Interstitial lung disease [Unknown]
  - Uterine cancer [Not Recovered/Not Resolved]
  - Renal cancer [Unknown]
  - Arthritis infective [Unknown]
  - Nodule [Not Recovered/Not Resolved]
  - Hepatic cirrhosis [Unknown]
  - Hepatic steatosis [Unknown]
  - Blood pressure abnormal [Recovered/Resolved]
  - Oropharyngeal pain [Unknown]
  - Blood pressure increased [Not Recovered/Not Resolved]
  - Nausea [Recovered/Resolved]
  - Ear pain [Recovering/Resolving]
  - Cough [Not Recovered/Not Resolved]
  - Dizziness [Not Recovered/Not Resolved]
  - Pyrexia [Recovered/Resolved]
  - Hypotension [Unknown]
  - Urine abnormality [Unknown]
  - Injection site extravasation [Recovered/Resolved]
  - Blood pressure fluctuation [Unknown]
  - Headache [Unknown]
  - Blood pressure systolic decreased [Unknown]
  - Renal cyst [Not Recovered/Not Resolved]
  - Fatigue [Unknown]
  - Wheezing [Recovering/Resolving]
  - Lung disorder [Recovering/Resolving]
  - Blood pressure diastolic abnormal [Unknown]
  - Oxygen saturation decreased [Unknown]
  - Malaise [Unknown]
  - Illness [Recovered/Resolved]
  - Blood pressure systolic increased [Unknown]
  - Poor venous access [Unknown]
  - Nasopharyngitis [Unknown]
  - Bronchitis [Recovered/Resolved]
  - Skin infection [Recovered/Resolved]
  - Blood urine present [Unknown]
  - Menopausal symptoms [Unknown]
  - Cystitis [Unknown]
  - Infusion related reaction [Unknown]
  - Weight increased [Not Recovered/Not Resolved]
  - Localised infection [Not Recovered/Not Resolved]
  - Hepatic enzyme increased [Unknown]
  - Joint swelling [Unknown]
  - Arthralgia [Not Recovered/Not Resolved]
  - Body temperature decreased [Unknown]
  - Erythema [Unknown]
  - Hyperhidrosis [Unknown]
  - Dry mouth [Unknown]
  - Blood creatinine increased [Unknown]
  - Arthritis [Recovering/Resolving]
  - Weight decreased [Unknown]
  - Back disorder [Unknown]
  - Heart rate increased [Unknown]

NARRATIVE: CASE EVENT DATE: 20121001
